FAERS Safety Report 4629289-0 (Version None)
Quarter: 2005Q2

REPORT INFORMATION
  Report Type: 
  Country: None (occurrence: None)
  Receive Date: 20050405
  Receipt Date: 20050405
  Transmission Date: 20051028
  Serious: Yes (Other)
  Sender: FDA-Public Use
  Company Number: None

PATIENT
  Age: 14 Year
  Sex: Female
  Weight: 77.1 kg

DRUGS (1)
  1. LAMICTAL [Suspect]
     Dosage: 150 MG POB ID
     Route: 048
     Dates: start: 20050225, end: 20050404

REACTIONS (1)
  - RASH ERYTHEMATOUS [None]
